FAERS Safety Report 24285618 (Version 1)
Quarter: 2024Q3

REPORT INFORMATION
  Report Type: Spontaneous
  Country: US (occurrence: US)
  Receive Date: 20240905
  Receipt Date: 20240905
  Transmission Date: 20241017
  Serious: No
  Sender: ABBVIE
  Company Number: US-ABBVIE-5897803

PATIENT
  Age: 38 Year
  Sex: Female

DRUGS (1)
  1. SKYRIZI [Suspect]
     Active Substance: RISANKIZUMAB-RZAA
     Indication: Product used for unknown indication
     Dosage: 150 MILLIGRAM/MILLILITERS
     Route: 058

REACTIONS (4)
  - Abdominal discomfort [Unknown]
  - Hypotension [Unknown]
  - Nausea [Unknown]
  - Dizziness [Unknown]
